FAERS Safety Report 13400026 (Version 4)
Quarter: 2017Q4

REPORT INFORMATION
  Report Type: Spontaneous
  Country: US (occurrence: US)
  Receive Date: 20170404
  Receipt Date: 20171116
  Transmission Date: 20180320
  Serious: Yes (Life-Threatening, Hospitalization, Other)
  Sender: FDA-Public Use
  Company Number: US-SUN PHARMACEUTICAL INDUSTRIES LTD-2017US-137481

PATIENT
  Age: 28 Year
  Sex: Male

DRUGS (1)
  1. LOPERAMIDE [Suspect]
     Active Substance: LOPERAMIDE
     Indication: PRODUCT USED FOR UNKNOWN INDICATION
     Dosage: UNK, DAILY (LARGE AMOUNTS OF LOPERAMIDE DAILY)
     Route: 048

REACTIONS (3)
  - Toxicity to various agents [Recovering/Resolving]
  - Torsade de pointes [Recovering/Resolving]
  - Drug abuse [Recovering/Resolving]
